FAERS Safety Report 6198038-X (Version None)
Quarter: 2009Q2

REPORT INFORMATION
  Report Type: 
  Country: None (occurrence: None)
  Receive Date: 20090518
  Receipt Date: 20090507
  Transmission Date: 20091009
  Serious: Yes (Hospitalization)
  Sender: FDA-Public Use
  Company Number: 1000005559

PATIENT
  Age: 45 Year
  Sex: Female
  Weight: 68.3 kg

DRUGS (15)
  1. MILNACIPRAN (OPEN-LABEL) (MILNACIPRAN HYDROCHLORIDE) [Suspect]
     Indication: FIBROMYALGIA
     Dosage: SEE IMAGE
     Route: 048
     Dates: start: 20090318, end: 20090318
  2. MILNACIPRAN (OPEN-LABEL) (MILNACIPRAN HYDROCHLORIDE) [Suspect]
     Indication: FIBROMYALGIA
     Dosage: SEE IMAGE
     Route: 048
     Dates: start: 20090319, end: 20090320
  3. MILNACIPRAN (OPEN-LABEL) (MILNACIPRAN HYDROCHLORIDE) [Suspect]
     Indication: FIBROMYALGIA
     Dosage: SEE IMAGE
     Route: 048
     Dates: start: 20090321, end: 20090324
  4. PREGABALIN [Suspect]
     Indication: FIBROMYALGIA
     Dosage: SEE IMAGE
     Route: 048
     Dates: start: 20090218, end: 20090219
  5. PREGABALIN [Suspect]
     Indication: FIBROMYALGIA
     Dosage: SEE IMAGE
     Route: 048
     Dates: start: 20090220, end: 20090223
  6. PREGABALIN [Suspect]
     Indication: FIBROMYALGIA
     Dosage: SEE IMAGE
     Route: 048
     Dates: start: 20090224, end: 20090228
  7. PREGABALIN [Suspect]
     Indication: FIBROMYALGIA
     Dosage: SEE IMAGE
     Route: 048
     Dates: start: 20090301, end: 20090324
  8. TYLENOL SINUS [Concomitant]
  9. SALONPAS (POULTICE OR PATCH) [Concomitant]
  10. TYLENOL [Concomitant]
  11. IBUPROFEN [Concomitant]
  12. KLONOPIN [Concomitant]
  13. ETODOLAC [Concomitant]
  14. VITAMIN D [Concomitant]
  15. PERCOCET [Concomitant]

REACTIONS (10)
  - BLOOD AMYLASE INCREASED [None]
  - BODY TEMPERATURE DECREASED [None]
  - FAECES HARD [None]
  - GASTRITIS [None]
  - HEART RATE INCREASED [None]
  - HEPATIC STEATOSIS [None]
  - IRRITABLE BOWEL SYNDROME [None]
  - RED BLOOD CELL COUNT DECREASED [None]
  - RESPIRATORY RATE INCREASED [None]
  - URINARY TRACT INFECTION [None]
